FAERS Safety Report 12172904 (Version 1)
Quarter: 2016Q1

REPORT INFORMATION
  Report Type: Spontaneous
  Country: US (occurrence: US)
  Receive Date: 20160311
  Receipt Date: 20160311
  Transmission Date: 20160526
  Serious: No
  Sender: FDA-Public Use
  Company Number: US-LUNDBECK-DKLU2009916

PATIENT
  Sex: Male

DRUGS (2)
  1. ONFI [Suspect]
     Active Substance: CLOBAZAM
     Indication: SEIZURE
     Route: 065
  2. OTHER SEIZURE MEDICATIONS [Concomitant]
     Indication: SEIZURE
     Route: 065

REACTIONS (1)
  - Intentional underdose [Unknown]
